FAERS Safety Report 18583276 (Version 1)
Quarter: 2020Q4

REPORT INFORMATION
  Report Type: Report from Study
  Country: None (occurrence: PR)
  Receive Date: 20201206
  Receipt Date: 20201206
  Transmission Date: 20210114
  Serious: Yes (Other)
  Sender: FDA-Public Use
  Company Number: PR-ABBVIE-20K-131-3657360-00

PATIENT
  Age: 59 Year
  Sex: Female
  Weight: 85.81 kg

DRUGS (1)
  1. HUMIRA [Suspect]
     Active Substance: ADALIMUMAB
     Indication: RHEUMATOID ARTHRITIS
     Route: 058
     Dates: start: 20190821

REACTIONS (7)
  - Joint ankylosis [Unknown]
  - Arthropathy [Unknown]
  - Osteoarthritis [Recovered/Resolved]
  - Bone cyst [Unknown]
  - Hypoaesthesia [Not Recovered/Not Resolved]
  - Trendelenburg^s symptom [Unknown]
  - Stitch abscess [Recovered/Resolved]

NARRATIVE: CASE EVENT DATE: 20200915
